FAERS Safety Report 6937308-1 (Version None)
Quarter: 2010Q3

REPORT INFORMATION
  Report Type: 
  Country: None (occurrence: None)
  Receive Date: 20100823
  Receipt Date: 20100630
  Transmission Date: 20110219
  Serious: No
  Sender: FDA-Public Use
  Company Number: US-MYLANLABS-2010S1011696

PATIENT
  Age: 26 Year
  Sex: Female

DRUGS (2)
  1. NITROFURANTOIN [Suspect]
     Indication: URINARY TRACT INFECTION
     Route: 048
     Dates: start: 20020502
  2. NITROFURANTOIN [Suspect]
     Route: 048
     Dates: end: 20060101

REACTIONS (1)
  - UVEITIS [None]
